FAERS Safety Report 17533429 (Version 1)
Quarter: 2020Q1

REPORT INFORMATION
  Report Type: Spontaneous
  Country: AR (occurrence: AR)
  Receive Date: 20200312
  Receipt Date: 20200312
  Transmission Date: 20200409
  Serious: Yes (Hospitalization)
  Sender: FDA-Public Use
  Company Number: AR-PFIZER INC-2020106182

PATIENT
  Sex: Male

DRUGS (1)
  1. SUTENT [Suspect]
     Active Substance: SUNITINIB MALATE
     Dosage: UNK

REACTIONS (6)
  - Lung disorder [Recovering/Resolving]
  - Pleural effusion [Recovering/Resolving]
  - Decreased immune responsiveness [Recovering/Resolving]
  - Muscle strength abnormal [Recovering/Resolving]
  - Gait inability [Recovering/Resolving]
  - Oral fungal infection [Recovering/Resolving]
